FAERS Safety Report 5492433-X (Version None)
Quarter: 2007Q4

REPORT INFORMATION
  Report Type: 
  Country: None (occurrence: None)
  Receive Date: 20071022
  Receipt Date: 20071009
  Transmission Date: 20080405
  Serious: Yes (Other)
  Sender: FDA-Public Use
  Company Number: US-AMGEN-US245790

PATIENT
  Sex: Male
  Weight: 57.2 kg

DRUGS (6)
  1. ARANESP [Suspect]
     Indication: RENAL FAILURE CHRONIC
     Dates: start: 20070101, end: 20070501
  2. ADVAIR DISKUS 100/50 [Concomitant]
  3. PRILOSEC [Concomitant]
  4. LISINOPRIL [Concomitant]
  5. VITAMIN CAP [Concomitant]
  6. DARVOCET [Concomitant]

REACTIONS (7)
  - APLASIA PURE RED CELL [None]
  - EOSINOPHILIA [None]
  - LEUKOCYTOSIS [None]
  - MONOCYTOSIS [None]
  - NEUTROPHILIA [None]
  - NORMOCHROMIC NORMOCYTIC ANAEMIA [None]
  - THROMBOCYTOPENIA [None]
